FAERS Safety Report 12677629 (Version 1)
Quarter: 2016Q3

REPORT INFORMATION
  Report Type: Spontaneous
  Country: JP (occurrence: JP)
  Receive Date: 20160823
  Receipt Date: 20160823
  Transmission Date: 20161109
  Serious: Yes (Death, Hospitalization, Other)
  Sender: FDA-Public Use
  Company Number: JP-PFIZER INC-JP-WYE-H10935109

PATIENT
  Age: 87 Year
  Sex: Male
  Weight: 41 kg

DRUGS (6)
  1. ZOSYN [Suspect]
     Active Substance: PIPERACILLIN SODIUM\TAZOBACTAM SODIUM
     Indication: PNEUMONIA ASPIRATION
     Dosage: 4.5 G, 3X/DAY
     Route: 041
     Dates: start: 20090806, end: 20090812
  2. ZOSYN [Suspect]
     Active Substance: PIPERACILLIN SODIUM\TAZOBACTAM SODIUM
     Dosage: 4.5 G, 3X/DAY
     Route: 041
     Dates: start: 20090826, end: 20090903
  3. URSO [Concomitant]
     Active Substance: URSODIOL
     Indication: BILE DUCT STONE
     Dosage: 600 MG, DAILY
     Route: 048
     Dates: end: 20090826
  4. TICPILONE [Concomitant]
     Active Substance: TICLOPIDINE HYDROCHLORIDE
     Indication: CEREBRAL INFARCTION
     Dosage: 200 MG, DAILY
     Route: 048
     Dates: end: 20090826
  5. MUCOSTA [Concomitant]
     Active Substance: REBAMIPIDE
     Indication: CHRONIC GASTRITIS
     Dosage: 200 MG, DAILY
     Route: 048
     Dates: end: 20090426
  6. OZEX /01070602/ [Concomitant]
     Active Substance: TOSUFLOXACIN TOSYLATE
     Indication: PNEUMONIA ASPIRATION
     Dosage: 300 MG, DAILY
     Route: 048
     Dates: start: 20090813, end: 20090817

REACTIONS (8)
  - Respiratory failure [Fatal]
  - Pulmonary oedema [Fatal]
  - Thrombocytopenia [Not Recovered/Not Resolved]
  - Disease progression [Fatal]
  - Disseminated intravascular coagulation [Unknown]
  - Hypoalbuminaemia [Fatal]
  - Acute respiratory distress syndrome [Fatal]
  - Pneumonia [Fatal]

NARRATIVE: CASE EVENT DATE: 20090826
